FAERS Safety Report 21113733 (Version 2)
Quarter: 2022Q3

REPORT INFORMATION
  Report Type: Spontaneous
  Country: US (occurrence: US)
  Receive Date: 20220721
  Receipt Date: 20220801
  Transmission Date: 20221027
  Serious: Yes (Other)
  Sender: FDA-Public Use
  Company Number: US-BAXTER-2022BAX014903

PATIENT
  Age: 0 Year
  Sex: Female
  Weight: .5 kg

DRUGS (9)
  1. PREMASOL - SULFITE-FREE (AMINO ACID) [Suspect]
     Active Substance: ALANINE\ARGININE\ASPARTIC ACID\CYSTEINE HYDROCHLORIDE\GLUTAMIC ACID\GLYCINE\HISTIDINE\ISOLEUCINE\LEU
     Indication: Nutritional supplementation
     Dosage: 4 G/KG
     Route: 042
     Dates: start: 20220707, end: 202207
  2. DEXMEDETOMIDINE [Suspect]
     Active Substance: DEXMEDETOMIDINE
     Indication: Sedative therapy
     Dosage: UNK
     Route: 042
     Dates: start: 20220707
  3. CALCIUM [Suspect]
     Active Substance: CALCIUM
     Indication: Parenteral nutrition
     Dosage: 2 MEQ/KG
     Route: 042
     Dates: start: 20220707, end: 202207
  4. PHOSPHORUS [Suspect]
     Active Substance: PHOSPHORUS
     Indication: Parenteral nutrition
     Dosage: 1 MMOL/KG
     Route: 042
     Dates: start: 20220707, end: 202207
  5. INTRALIPID [Suspect]
     Active Substance: EGG PHOSPHOLIPIDS\GLYCERIN\SOYBEAN OIL
     Dosage: 1 G/KG ON DOL 1
     Route: 042
     Dates: start: 20220707
  6. CALCIUM GLUCONATE [Suspect]
     Active Substance: CALCIUM GLUCONATE
     Indication: Hypocalcaemia
     Dosage: 3 BOLUS OF 100 MG/KG, TID OVER THE COURSE OF A DAY AND HALF
     Route: 042
     Dates: start: 20220707, end: 20220709
  7. SMOFLIPID [Suspect]
     Active Substance: FISH OIL\MEDIUM-CHAIN TRIGLYCERIDES\OLIVE OIL\SOYBEAN OIL
     Indication: Nutritional supplementation
     Dosage: 2 G/KG ON DOL 2
     Route: 042
     Dates: start: 20220707, end: 202207
  8. PRECEDEX [Suspect]
     Active Substance: DEXMEDETOMIDINE HYDROCHLORIDE
     Indication: Nutritional supplementation
     Dosage: UNK
     Route: 042
     Dates: start: 20220707
  9. DEXTROSE [Suspect]
     Active Substance: DEXTROSE
     Indication: Nutritional supplementation
     Dosage: UNK
     Route: 065
     Dates: start: 20220707, end: 202207

REACTIONS (2)
  - Hypoglycaemia neonatal [Recovered/Resolved]
  - Device occlusion [Unknown]

NARRATIVE: CASE EVENT DATE: 20220708
